FAERS Safety Report 10037224 (Version 5)
Quarter: 2014Q2

REPORT INFORMATION
  Report Type: Spontaneous
  Country: GB (occurrence: GB)
  Receive Date: 20140326
  Receipt Date: 20140428
  Transmission Date: 20141212
  Serious: Yes (Death)
  Sender: FDA-Public Use
  Company Number: GB-RANBAXY-2005RR-00999

PATIENT
  Age: 63 Year
  Sex: Male

DRUGS (14)
  1. LISINOPRIL [Suspect]
     Indication: PRODUCT USED FOR UNKNOWN INDICATION
     Dosage: 10 MG, UNK
     Route: 065
  2. NYSTATIN [Suspect]
     Indication: PRODUCT USED FOR UNKNOWN INDICATION
     Dosage: 100000 IU, UNK
     Route: 065
  3. PARACETAMOL [Suspect]
     Indication: PRODUCT USED FOR UNKNOWN INDICATION
     Dosage: 500 MG, UNK
     Route: 048
  4. TRAMADOL [Suspect]
     Indication: PRODUCT USED FOR UNKNOWN INDICATION
     Dosage: 50 MG, QD
     Route: 048
  5. SALBUTAMOL [Suspect]
     Indication: PRODUCT USED FOR UNKNOWN INDICATION
     Dosage: 100 MICROGRAM, UNK
     Route: 055
  6. SPIRIVA [Suspect]
     Indication: CHRONIC OBSTRUCTIVE PULMONARY DISEASE
     Dosage: 18 MICROGRAM, UNK
     Route: 065
  7. BUMETANIDE [Suspect]
     Indication: PRODUCT USED FOR UNKNOWN INDICATION
     Dosage: 1 MG, UNK
     Route: 065
  8. HUMALOG [Suspect]
     Indication: PRODUCT USED FOR UNKNOWN INDICATION
     Dosage: 100 IU, UNK
     Route: 065
  9. FOSAMAX [Suspect]
     Indication: PRODUCT USED FOR UNKNOWN INDICATION
     Dosage: 70 MG, QW
     Route: 048
  10. HUMULIN [Suspect]
     Indication: PRODUCT USED FOR UNKNOWN INDICATION
     Dosage: 100 IU, UNK
     Route: 065
  11. HUMULIN M3 [Suspect]
     Indication: PRODUCT USED FOR UNKNOWN INDICATION
     Dosage: 100 IU, UNK
     Route: 065
  12. SERETIDE [Suspect]
     Indication: PRODUCT USED FOR UNKNOWN INDICATION
     Dosage: 500 IU, UNK
     Route: 065
  13. SINGULAIR [Suspect]
     Indication: PRODUCT USED FOR UNKNOWN INDICATION
     Dosage: 10 MG, UNK
     Route: 065
  14. INSUMAN COMB [Suspect]
     Indication: PRODUCT USED FOR UNKNOWN INDICATION
     Dosage: 100 IU, UNK
     Route: 065

REACTIONS (1)
  - Lobar pneumonia [Fatal]
